FAERS Safety Report 8135566 (Version 2)
Quarter: 2013Q2

REPORT INFORMATION
  Report Type: Spontaneous
  Country: JP (occurrence: JP)
  Receive Date: 20110914
  Receipt Date: 20130603
  Transmission Date: 20140414
  Serious: Yes (Hospitalization)
  Sender: FDA-Public Use
  Company Number: JP-NOVOPROD-334433

PATIENT
  Age: 37 Year
  Sex: Male

DRUGS (11)
  1. VICTOZA HIKACHU INJECTION [Suspect]
     Indication: TYPE 2 DIABETES MELLITUS
     Dosage: 0.6 MG/ QD
     Route: 058
     Dates: start: 20110311
  2. VICTOZA HIKACHU INJECTION [Suspect]
     Dosage: 0.9 MG/ QD
     Route: 058
     Dates: start: 20110313
  3. NEOPHAGEN                          /00467204/ [Concomitant]
     Dosage: 100 ML, QD
     Route: 042
  4. BROTIZOLAM [Concomitant]
     Dosage: 0.25 MG, QD
     Route: 048
  5. ROHYPNOL [Concomitant]
     Dosage: 2 MG, QD
     Route: 048
  6. NITOROL [Concomitant]
     Dosage: UNK
     Route: 048
  7. MAINTATE [Concomitant]
     Dosage: 5 MG, QD
     Route: 048
  8. HERBESSER [Concomitant]
     Dosage: 30 MG, QD
     Route: 048
  9. NORVASC [Concomitant]
     Dosage: 5 MG, QD
     Route: 048
  10. LASIX                              /00032601/ [Concomitant]
     Dosage: 20 MG, QD
     Route: 048
  11. ALKIXA [Concomitant]
     Dosage: 300 MG, QD
     Route: 048

REACTIONS (2)
  - Hypoglycaemic coma [Recovering/Resolving]
  - Treatment noncompliance [Unknown]
